FAERS Safety Report 4607047-0 (Version None)
Quarter: 2005Q1

REPORT INFORMATION
  Report Type: 
  Country: None (occurrence: None)
  Receive Date: 20050310
  Receipt Date: 20050224
  Transmission Date: 20050727
  Serious: Yes (Other)
  Sender: FDA-Public Use
  Company Number: SUS1-2005-00142

PATIENT
  Age: 54 Year
  Sex: Male
  Weight: 94.8 kg

DRUGS (11)
  1. FOSRENOL [Suspect]
     Indication: HYPERPHOSPHATAEMIA
     Dosage: 500 MG,3X/DAY, TID
     Dates: start: 20050122, end: 20050221
  2. NEPHRO-VITE RX (ASCORBIC ACID, FOLIC ACID, VITAMIN B NOS) [Concomitant]
  3. EPOGEN [Concomitant]
  4. ZEMPLAR [Concomitant]
  5. AVAPRO [Concomitant]
  6. METOPROLOL TARTRATE [Concomitant]
  7. PROCARDIA [Concomitant]
  8. WARFARIN SODIUM [Concomitant]
  9. ZOLOFT [Concomitant]
  10. SENSIPAR [Concomitant]
  11. FERRLECIT /GFR/(FERRIC SODIUM GLUCONATE COMPLEX) [Concomitant]

REACTIONS (3)
  - ATRIOVENTRICULAR BLOCK [None]
  - BLOOD PRESSURE INCREASED [None]
  - BRADYCARDIA [None]
